FAERS Safety Report 23756101 (Version 1)
Quarter: 2024Q2

REPORT INFORMATION
  Report Type: Spontaneous
  Country: US (occurrence: None)
  Receive Date: 20240418
  Receipt Date: 20240418
  Transmission Date: 20240716
  Serious: No
  Sender: FDA-Public Use
  Company Number: None

PATIENT
  Age: 54 Year
  Sex: Male
  Weight: 110 kg

DRUGS (2)
  1. CEFEPIME HYDROCHLORIDE [Suspect]
     Active Substance: CEFEPIME HYDROCHLORIDE
     Dosage: 2 GM TID IV
     Route: 042
     Dates: start: 20231010, end: 20231011
  2. PANTOPRAZOLE SODIUM [Suspect]
     Active Substance: PANTOPRAZOLE SODIUM
     Dosage: 40 MG  AM IV ?
     Route: 042
     Dates: start: 20231010, end: 20231016

REACTIONS (5)
  - Erythema multiforme [None]
  - Skin exfoliation [None]
  - Dermatitis bullous [None]
  - Stevens-Johnson syndrome [None]
  - Drug eruption [None]

NARRATIVE: CASE EVENT DATE: 20231017
